FAERS Safety Report 9871549 (Version 1)
Quarter: 2014Q1

REPORT INFORMATION
  Report Type: Report from Study
  Country: US (occurrence: US)
  Receive Date: 20140205
  Receipt Date: 20140205
  Transmission Date: 20141002
  Serious: No
  Sender: FDA-Public Use
  Company Number: US-ALEXION-A201304854

PATIENT
  Sex: Female

DRUGS (1)
  1. SOLIRIS [Suspect]
     Indication: HAEMOLYTIC URAEMIC SYNDROME
     Dosage: UNK
     Route: 042

REACTIONS (7)
  - Confusional state [Unknown]
  - Oedema [Unknown]
  - Fatigue [Unknown]
  - Diarrhoea [Unknown]
  - Haemoglobinuria [Unknown]
  - Nausea [Unknown]
  - Vomiting [Unknown]
